FAERS Safety Report 6862292-9 (Version None)
Quarter: 2010Q3

REPORT INFORMATION
  Report Type: 
  Country: None (occurrence: None)
  Receive Date: 20100721
  Receipt Date: 20100713
  Transmission Date: 20110219
  Serious: Yes (Other)
  Sender: FDA-Public Use
  Company Number: US-ASTRAZENECA-2010SE32684

PATIENT
  Age: 88 Year
  Sex: Female
  Weight: 56.7 kg

DRUGS (6)
  1. NEXIUM [Suspect]
     Indication: GASTROOESOPHAGEAL REFLUX DISEASE
     Route: 048
  2. NEXIUM [Suspect]
     Route: 048
  3. MULTI-VITAMIN [Concomitant]
  4. FISH OIL [Concomitant]
  5. EVISTA [Concomitant]
  6. CALCIUM [Concomitant]

REACTIONS (1)
  - LYMPHOMA [None]
